FAERS Safety Report 9714632 (Version 3)
Quarter: 2014Q1

REPORT INFORMATION
  Report Type: Spontaneous
  Country: PL (occurrence: PL)
  Receive Date: 20131126
  Receipt Date: 20140127
  Transmission Date: 20141002
  Serious: Yes (Life-Threatening)
  Sender: FDA-Public Use
  Company Number: PL-BRACCO-000212

PATIENT
  Age: 54 Year
  Sex: Female
  Weight: 72 kg

DRUGS (10)
  1. MULTIHANCE [Suspect]
     Indication: NUCLEAR MAGNETIC RESONANCE IMAGING
     Route: 042
     Dates: start: 20130802, end: 20130802
  2. TRILEPTAL [Concomitant]
     Indication: EPILEPSY
     Route: 048
     Dates: start: 2005
  3. NEUROTIN [Concomitant]
     Indication: EPILEPSY
     Route: 048
     Dates: start: 2005
  4. AZATHIOPRINE [Concomitant]
     Indication: MUSCULAR WEAKNESS
     Route: 048
     Dates: start: 201209
  5. QLAIRA [Concomitant]
     Route: 048
     Dates: start: 201205, end: 20130803
  6. EUTHYROX [Concomitant]
     Indication: THYROIDITIS
     Route: 048
     Dates: start: 2004
  7. GASEC [Concomitant]
     Indication: PROPHYLAXIS
     Route: 048
     Dates: start: 2000
  8. BROMERGON [Concomitant]
     Indication: HYPERPITUITARISM
     Route: 048
     Dates: start: 2004
  9. ZYRTEC [Concomitant]
     Indication: RHINITIS
     Route: 048
     Dates: start: 2000
  10. MESTINON [Concomitant]
     Indication: MUSCULAR WEAKNESS
     Route: 048
     Dates: start: 1993

REACTIONS (1)
  - Deep vein thrombosis [Recovering/Resolving]
